FAERS Safety Report 9002884 (Version 2)
Quarter: 2013Q1

REPORT INFORMATION
  Report Type: Spontaneous
  Country: CN (occurrence: CN)
  Receive Date: 20130108
  Receipt Date: 20130114
  Transmission Date: 20140127
  Serious: No
  Sender: FDA-Public Use
  Company Number: CN-PFIZER INC-2013004266

PATIENT
  Age: 76 Year
  Sex: Female
  Weight: 60 kg

DRUGS (1)
  1. MS CONTIN [Suspect]
     Indication: CANCER PAIN
     Dosage: 30 MG, 3X/DAY
     Route: 048
     Dates: start: 20090623, end: 20090623

REACTIONS (1)
  - Hypoaesthesia [Recovered/Resolved]
